FAERS Safety Report 7483744-7 (Version None)
Quarter: 2011Q2

REPORT INFORMATION
  Report Type: 
  Country: None (occurrence: None)
  Receive Date: 20110517
  Receipt Date: 20110503
  Transmission Date: 20111010
  Serious: Yes (Hospitalization, Other)
  Sender: FDA-Public Use
  Company Number: US-ELI_LILLY_AND_COMPANY-US201103003148

PATIENT
  Sex: Female

DRUGS (8)
  1. FORTEO [Suspect]
     Dosage: 20 UG, DAILY (1/D)
     Dates: start: 20101201, end: 20110202
  2. DULCOLAX [Concomitant]
     Dosage: 10 MG, OTHER
     Route: 054
  3. MULTI-VITAMIN [Concomitant]
  4. FEMARA [Concomitant]
     Dosage: 2.5 MG, UNK
     Route: 048
  5. FOSAMAX [Concomitant]
  6. SYNTHROID [Concomitant]
  7. CALCIUM 600 PLUS VITAMIN D [Concomitant]
     Dosage: UNK, OTHER
     Route: 048
  8. HEMORRHOIDAL                       /01566601/ [Concomitant]
     Dosage: UNK UNK, OTHER

REACTIONS (16)
  - BLOOD CALCIUM DECREASED [None]
  - HYPOKALAEMIA [None]
  - ANORECTAL DISORDER [None]
  - ELECTROLYTE IMBALANCE [None]
  - HYPERCALCAEMIA [None]
  - DEHYDRATION [None]
  - BLOOD POTASSIUM INCREASED [None]
  - FALL [None]
  - MASS [None]
  - PELVIC FRACTURE [None]
  - DELUSION [None]
  - URINARY INCONTINENCE [None]
  - OEDEMA PERIPHERAL [None]
  - STARVATION [None]
  - EXPRESSIVE LANGUAGE DISORDER [None]
  - BACK PAIN [None]
